FAERS Safety Report 15492080 (Version 1)
Quarter: 2018Q4

REPORT INFORMATION
  Report Type: Spontaneous
  Country: FR (occurrence: FR)
  Receive Date: 20181012
  Receipt Date: 20181012
  Transmission Date: 20190205
  Serious: Yes (Hospitalization)
  Sender: FDA-Public Use
  Company Number: FR-AUROBINDO-AUR-APL-2018-050266

PATIENT
  Age: 40 Year
  Sex: Female
  Weight: 60 kg

DRUGS (8)
  1. PARACETAMOL [Suspect]
     Active Substance: ACETAMINOPHEN
     Indication: ANALGESIC THERAPY
     Dosage: 1 GRAM, ONCE A DAY
     Route: 042
     Dates: start: 20110906, end: 20110906
  2. MORPHINE [Suspect]
     Active Substance: MORPHINE
     Indication: ANALGESIC THERAPY
     Dosage: UNK
     Route: 042
     Dates: start: 20110906, end: 20110906
  3. DIPRIVAN [Suspect]
     Active Substance: PROPOFOL
     Indication: ANAESTHESIA
     Dosage: 170 MILLIGRAM, ONCE A DAY
     Route: 042
     Dates: start: 20110906, end: 20110906
  4. SYNTOCINON [Suspect]
     Active Substance: OXYTOCIN
     Indication: CAESAREAN SECTION
     Dosage: 20 INTERNATIONAL UNIT, ONCE A DAY
     Route: 042
     Dates: start: 20110906, end: 20110906
  5. CEFAZOLINE /00288501/ [Suspect]
     Active Substance: CEFAZOLIN
     Indication: PROPHYLAXIS
     Dosage: UNK
     Route: 042
     Dates: start: 20110906, end: 20110906
  6. CELOCURINE                         /00057702/ [Suspect]
     Active Substance: SUCCINYLCHOLINE CHLORIDE
     Indication: ANAESTHESIA
     Dosage: UNK
     Route: 042
     Dates: start: 20110906, end: 20110906
  7. SUFENTANIL [Suspect]
     Active Substance: SUFENTANIL
     Indication: ANALGESIC THERAPY
     Dosage: 20 MICROGRAM, ONCE A DAY
     Route: 042
     Dates: start: 20110906, end: 20110906
  8. NEFOPAM [Suspect]
     Active Substance: NEFOPAM
     Indication: ANALGESIC THERAPY
     Dosage: 100 MILLIGRAM, ONCE A DAY
     Route: 042
     Dates: start: 20110906, end: 20110906

REACTIONS (1)
  - Fibromyalgia [Not Recovered/Not Resolved]

NARRATIVE: CASE EVENT DATE: 20110906
